FAERS Safety Report 6637893-3 (Version None)
Quarter: 2010Q1

REPORT INFORMATION
  Report Type: 
  Country: None (occurrence: None)
  Receive Date: 20100317
  Receipt Date: 20100304
  Transmission Date: 20100710
  Serious: Yes (Hospitalization)
  Sender: FDA-Public Use
  Company Number: PHHY2010GB14337

PATIENT

DRUGS (1)
  1. ACLASTA [Suspect]

REACTIONS (1)
  - HIP ARTHROPLASTY [None]
